FAERS Safety Report 10060803 (Version 2)
Quarter: 2014Q2

REPORT INFORMATION
  Report Type: Report from Study
  Country: US (occurrence: US)
  Receive Date: 20140404
  Receipt Date: 20140404
  Transmission Date: 20141212
  Serious: Yes (Other)
  Sender: FDA-Public Use
  Company Number: US-ABBVIE-14P-163-1213057-00

PATIENT
  Age: 79 Year
  Sex: Female

DRUGS (7)
  1. HUMIRA [Suspect]
     Indication: PSORIATIC ARTHROPATHY
     Dates: start: 20131104
  2. CADUET [Concomitant]
     Indication: HYPERTENSION
  3. UNKNOWN MEDICATION [Concomitant]
     Indication: GASTROOESOPHAGEAL REFLUX DISEASE
  4. B12 [Concomitant]
     Indication: VITAMIN SUPPLEMENTATION
     Route: 048
  5. EPIPEN [Concomitant]
     Indication: FOOD ALLERGY
  6. EPIPEN [Concomitant]
     Indication: FOOD ALLERGY
  7. FISH OIL [Concomitant]
     Indication: PRODUCT USED FOR UNKNOWN INDICATION

REACTIONS (6)
  - Atrioventricular block complete [Unknown]
  - Injection site swelling [Recovered/Resolved]
  - Rash papular [Recovered/Resolved]
  - Rash pruritic [Recovered/Resolved]
  - Restless legs syndrome [Unknown]
  - Abdominal distension [Recovering/Resolving]
